FAERS Safety Report 16482831 (Version 1)
Quarter: 2019Q2

REPORT INFORMATION
  Report Type: Spontaneous
  Country: FR (occurrence: FR)
  Receive Date: 20190627
  Receipt Date: 20190627
  Transmission Date: 20190711
  Serious: Yes (Hospitalization)
  Sender: FDA-Public Use
  Company Number: FR-ACCORD-135372

PATIENT
  Age: 63 Year
  Sex: Female
  Weight: 52 kg

DRUGS (18)
  1. PACLITAXEL/PACLITAXEL LIPOSOME [Suspect]
     Active Substance: PACLITAXEL
     Indication: CHEMOTHERAPY
     Route: 041
     Dates: start: 20190221, end: 20190221
  2. IMOVANE [Concomitant]
     Active Substance: ZOPICLONE
     Dosage: AT BEDTIME
     Route: 048
  3. LANSOPRAZOLE. [Concomitant]
     Active Substance: LANSOPRAZOLE
     Indication: GASTROINTESTINAL ULCER MANAGEMENT
     Route: 048
  4. ZYMAD [Concomitant]
     Active Substance: CHOLECALCIFEROL
     Route: 048
  5. SEROPLEX [Concomitant]
     Active Substance: ESCITALOPRAM OXALATE
     Dosage: STRENGTH : 20 MG
     Route: 048
  6. XANAX [Concomitant]
     Active Substance: ALPRAZOLAM
     Dosage: IF NECESSARY
     Route: 048
  7. LEVEMIR [Concomitant]
     Active Substance: INSULIN DETEMIR
     Indication: INSULIN-REQUIRING TYPE 2 DIABETES MELLITUS
     Dosage: THE EVENING
     Route: 058
  8. BISOCE [Concomitant]
     Active Substance: BISOPROLOL
     Indication: CARDIAC FAILURE
     Dosage: STRENGTH : 2.5 MG
     Route: 048
  9. LYRICA [Concomitant]
     Active Substance: PREGABALIN
     Dosage: 50 MG, 25 MG, 25 MG,STRENGTH : 25 MG
     Route: 048
  10. MYFORTIC [Concomitant]
     Active Substance: MYCOPHENOLATE SODIUM
     Dosage: GASTRO-RESISTANT FILM-COATED TABLET,STRENGTH : 360 MG
     Route: 048
     Dates: start: 201301
  11. CREON [Concomitant]
     Active Substance: PANCRELIPASE AMYLASE\PANCRELIPASE LIPASE\PANCRELIPASE PROTEASE
     Route: 048
  12. OXYCODONE/OXYCODONE HYDROCHLORIDE/OXYCODONE PECTINATE/OXYCODONE TEREPHTHALATE [Concomitant]
     Route: 048
  13. OXYNORM [Concomitant]
     Active Substance: OXYCODONE HYDROCHLORIDE
     Dosage: IN THE EVENING IF NEEDED,STRENGTH : 5 MG
     Route: 048
  14. CARBOPLATIN. [Suspect]
     Active Substance: CARBOPLATIN
     Indication: CHEMOTHERAPY
     Route: 041
     Dates: start: 20190221, end: 20190221
  15. ACTRAPID [Concomitant]
     Active Substance: INSULIN HUMAN
     Indication: INSULIN-REQUIRING TYPE 2 DIABETES MELLITUS
     Route: 058
  16. AMLOR [Concomitant]
     Active Substance: AMLODIPINE BESYLATE
     Indication: HYPERTENSION
     Dosage: A MORNING CATCH,STRENGTH : 5MG
     Route: 048
  17. ADVAGRAF [Concomitant]
     Active Substance: TACROLIMUS
     Dosage: STRENGTH : 1 MG
     Route: 048
     Dates: start: 201301
  18. KARDEGIC [Concomitant]
     Active Substance: ASPIRIN DL-LYSINE
     Indication: VASCULAR DISORDER PROPHYLAXIS
     Dosage: STRENGTH : 75 MG
     Route: 048

REACTIONS (2)
  - Vomiting [Recovering/Resolving]
  - Febrile bone marrow aplasia [Recovering/Resolving]

NARRATIVE: CASE EVENT DATE: 20190304
